FAERS Safety Report 8133344-0 (Version None)
Quarter: 2012Q1

REPORT INFORMATION
  Report Type: 
  Country: None (occurrence: None)
  Receive Date: 20120213
  Receipt Date: 20120201
  Transmission Date: 20120608
  Serious: Yes (Hospitalization)
  Sender: FDA-Public Use
  Company Number: US-ACTELION-A-US2011-58739

PATIENT

DRUGS (8)
  1. EPOPROSTENOL SODIUM [Suspect]
     Indication: PULMONARY ARTERIAL HYPERTENSION
     Dosage: 7 NG/KG, PER MIN
     Route: 042
     Dates: start: 20111115
  2. ZOCOR [Concomitant]
  3. COUMADIN [Concomitant]
  4. TRACLEER [Suspect]
     Indication: PULMONARY ARTERIAL HYPERTENSION
     Dosage: UNK
     Route: 048
     Dates: start: 20110909
  5. EPOPROSTENOL SODIUM [Suspect]
     Dosage: 13 MG/KG, PER MIN
     Route: 042
  6. CALCIUM CHANNEL BLOCKERS [Concomitant]
  7. SILDENAFIL [Concomitant]
  8. ASPIRIN [Concomitant]

REACTIONS (9)
  - PAIN [None]
  - PYREXIA [None]
  - FLATULENCE [None]
  - RENAL IMPAIRMENT [None]
  - LIVER FUNCTION TEST ABNORMAL [None]
  - RESPIRATORY FAILURE [None]
  - DECREASED APPETITE [None]
  - FLUID RETENTION [None]
  - PRURITUS [None]
